FAERS Safety Report 8250166-0 (Version None)
Quarter: 2012Q2

REPORT INFORMATION
  Report Type: 
  Country: None (occurrence: None)
  Receive Date: 20120402
  Receipt Date: 20120319
  Transmission Date: 20120825
  Serious: Yes (Disabling)
  Sender: FDA-Public Use
  Company Number: NZ-AMGEN-NZLSP2012007341

PATIENT
  Sex: Female
  Weight: 91 kg

DRUGS (7)
  1. ENALAPRIL [Concomitant]
     Indication: HYPERTENSION
     Dosage: UNK
     Route: 048
  2. ENBREL [Suspect]
     Indication: PSORIASIS
  3. ASPIRIN [Concomitant]
     Indication: PROPHYLAXIS
     Dosage: UNK
     Route: 048
  4. METFORMIN HCL [Concomitant]
     Indication: DIABETES MELLITUS
     Dosage: UNK
     Route: 048
  5. ENBREL [Suspect]
     Indication: PSORIATIC ARTHROPATHY
     Dosage: 50 MG, WEEKLY
     Route: 058
     Dates: start: 20110301
  6. GLIPIZIDE [Concomitant]
     Indication: DIABETES MELLITUS
     Dosage: UNK
     Route: 048
  7. AMLODIPINE [Concomitant]
     Indication: HYPERTENSION
     Dosage: UNK
     Route: 048

REACTIONS (4)
  - PSORIASIS [None]
  - INCORRECT STORAGE OF DRUG [None]
  - STRESS [None]
  - DRUG INEFFECTIVE [None]
